FAERS Safety Report 20640139 (Version 1)
Quarter: 2022Q1

REPORT INFORMATION
  Report Type: Other
  Country: US (occurrence: None)
  Receive Date: 20220326
  Receipt Date: 20220326
  Transmission Date: 20220423
  Serious: Yes (Hospitalization)
  Sender: FDA-Public Use
  Company Number: US-ROCHE-3051846

PATIENT
  Age: 40 Year
  Sex: Male
  Weight: 102.15 kg

DRUGS (10)
  1. OCREVUS [Suspect]
     Active Substance: OCRELIZUMAB
     Indication: Relapsing-remitting multiple sclerosis
     Route: 042
     Dates: start: 20210416, end: 20210430
  2. OCREVUS [Suspect]
     Active Substance: OCRELIZUMAB
     Dosage: YES
     Route: 042
  3. ELIQUIS [Concomitant]
     Active Substance: APIXABAN
  4. BACLOFEN [Concomitant]
     Active Substance: BACLOFEN
     Dosage: QID
  5. COLACE [Concomitant]
     Active Substance: DOCUSATE SODIUM
  6. PEPCID [Concomitant]
     Active Substance: FAMOTIDINE
  7. LASIX [Concomitant]
     Active Substance: FUROSEMIDE
  8. XYZAL [Concomitant]
     Active Substance: LEVOCETIRIZINE DIHYDROCHLORIDE
     Dosage: EVERY NIGHT
  9. ROBAXIN [Concomitant]
     Active Substance: METHOCARBAMOL
     Dosage: QID
  10. MODAFINIL [Concomitant]
     Active Substance: MODAFINIL

REACTIONS (4)
  - Cellulitis [Recovered/Resolved]
  - Thrombosis [Recovered/Resolved]
  - Muscular weakness [Unknown]
  - Migraine [Unknown]

NARRATIVE: CASE EVENT DATE: 20211123
